FAERS Safety Report 12955611 (Version 1)
Quarter: 2016Q4

REPORT INFORMATION
  Report Type: Spontaneous
  Country: PT (occurrence: PT)
  Receive Date: 20161118
  Receipt Date: 20161118
  Transmission Date: 20170207
  Serious: Yes (Other)
  Sender: FDA-Public Use
  Company Number: PT-SA-2016SA205815

PATIENT
  Age: 63 Year
  Sex: Male

DRUGS (1)
  1. BCG FOR IMMUNOTHERAPY [Suspect]
     Active Substance: BACILLUS CALMETTE-GUERIN ANTIGEN, UNSPECIFIED SUBSTRAIN
     Indication: BLADDER CANCER
     Route: 043

REACTIONS (6)
  - Hepatic enzyme increased [Recovering/Resolving]
  - Phagocytosis [Recovering/Resolving]
  - Disseminated Bacillus Calmette-Guerin infection [Recovering/Resolving]
  - Pancytopenia [Recovering/Resolving]
  - Histiocytosis haematophagic [Recovering/Resolving]
  - Pyrexia [Recovering/Resolving]
